FAERS Safety Report 4963448-2 (Version None)
Quarter: 2006Q2

REPORT INFORMATION
  Report Type: 
  Country: None (occurrence: None)
  Receive Date: 20060404
  Receipt Date: 20060404
  Transmission Date: 20061013
  Serious: Yes (Hospitalization)
  Sender: FDA-Public Use
  Company Number: None

PATIENT
  Age: 80 Year
  Sex: Male
  Weight: 80.2867 kg

DRUGS (2)
  1. WARFARIN SODIUM [Suspect]
     Dosage: 3 MG QD
  2. CLOPIDOGREL [Suspect]
     Dosage: 75 MG QD

REACTIONS (2)
  - DRUG LEVEL ABOVE THERAPEUTIC [None]
  - RETROPERITONEAL HAEMORRHAGE [None]
